FAERS Safety Report 19813676 (Version 8)
Quarter: 2022Q4

REPORT INFORMATION
  Report Type: Spontaneous
  Country: CA (occurrence: CA)
  Receive Date: 20210910
  Receipt Date: 20221114
  Transmission Date: 20230113
  Serious: Yes (Other)
  Sender: FDA-Public Use
  Company Number: CA-PFIZER INC-2020364940

PATIENT
  Age: 47 Year
  Sex: Female
  Weight: 53.7 kg

DRUGS (36)
  1. ZIRABEV [Suspect]
     Active Substance: BEVACIZUMAB-BVZR
     Indication: Ovarian cancer stage IV
     Dosage: 10 MG/KG (540 MG), EVERY 2 WEEKS
     Route: 042
     Dates: start: 20201028
  2. ZIRABEV [Suspect]
     Active Substance: BEVACIZUMAB-BVZR
     Dosage: 10 MG/KG (540 MG), EVERY 2 WEEKS
     Route: 042
     Dates: start: 20201111
  3. ZIRABEV [Suspect]
     Active Substance: BEVACIZUMAB-BVZR
     Dosage: 10 MG/KG (545 MG), EVERY 2 WEEKS
     Route: 042
     Dates: start: 20201209
  4. ZIRABEV [Suspect]
     Active Substance: BEVACIZUMAB-BVZR
     Dosage: 10 MG/KG (555) MG), EVERY 2 WEEKS
     Route: 042
     Dates: start: 20201223
  5. ZIRABEV [Suspect]
     Active Substance: BEVACIZUMAB-BVZR
     Dosage: 562 MG EVERY 2 WEEKS
     Route: 042
     Dates: start: 20210106
  6. ZIRABEV [Suspect]
     Active Substance: BEVACIZUMAB-BVZR
     Dosage: 562 MG, EVERY 2 WEEKS
     Route: 042
     Dates: start: 20210106
  7. ZIRABEV [Suspect]
     Active Substance: BEVACIZUMAB-BVZR
     Dosage: 566 MG, EVERY 2 WEEKS
     Route: 042
     Dates: start: 20210120
  8. ZIRABEV [Suspect]
     Active Substance: BEVACIZUMAB-BVZR
     Dosage: 552.7 MG, EVERY 2 WEEKS
     Route: 042
     Dates: start: 20210203
  9. ZIRABEV [Suspect]
     Active Substance: BEVACIZUMAB-BVZR
     Dosage: 552.7 MG, EVERY 2 WEEKS
     Route: 042
     Dates: start: 20210217
  10. ZIRABEV [Suspect]
     Active Substance: BEVACIZUMAB-BVZR
     Dosage: 543 MG, EVERY 2 WEEKS
     Route: 042
     Dates: start: 20210303
  11. ZIRABEV [Suspect]
     Active Substance: BEVACIZUMAB-BVZR
     Dosage: 540 MG, EVERY 2 WEEKS
     Route: 042
     Dates: start: 20210317
  12. ZIRABEV [Suspect]
     Active Substance: BEVACIZUMAB-BVZR
     Dosage: 539 MG, EVERY 2 WEEKS
     Route: 042
     Dates: start: 20210331
  13. ZIRABEV [Suspect]
     Active Substance: BEVACIZUMAB-BVZR
     Dosage: 536 MG, EVERY 2 WEEKS
     Route: 042
     Dates: start: 20210414
  14. ZIRABEV [Suspect]
     Active Substance: BEVACIZUMAB-BVZR
     Dosage: 536 MG, EVERY 2 WEEKS
     Route: 042
     Dates: start: 20210526
  15. ZIRABEV [Suspect]
     Active Substance: BEVACIZUMAB-BVZR
     Dosage: 524 MG, EVERY 2 WEEKS
     Route: 042
     Dates: start: 20210721
  16. ZIRABEV [Suspect]
     Active Substance: BEVACIZUMAB-BVZR
     Dosage: 527 MG, EVERY 2 WEEKS
     Route: 042
     Dates: start: 20210804
  17. ZIRABEV [Suspect]
     Active Substance: BEVACIZUMAB-BVZR
     Dosage: 528 MG, EVERY 2 WEEKS
     Route: 042
     Dates: start: 20210818
  18. ZIRABEV [Suspect]
     Active Substance: BEVACIZUMAB-BVZR
     Dosage: 10 MG/KG (523 MG), EVERY 2 WEEKS
     Route: 042
     Dates: start: 20210901
  19. ZIRABEV [Suspect]
     Active Substance: BEVACIZUMAB-BVZR
     Dosage: 10 MG/KG (513 MG), EVERY 2 WEEKS
     Route: 042
     Dates: start: 20210915
  20. ZIRABEV [Suspect]
     Active Substance: BEVACIZUMAB-BVZR
     Dosage: 523 MG
     Route: 042
     Dates: start: 20210929
  21. ZIRABEV [Suspect]
     Active Substance: BEVACIZUMAB-BVZR
     Dosage: 10 MG/KG EVERY 2 WEEKS
     Route: 042
     Dates: start: 20211028
  22. ZIRABEV [Suspect]
     Active Substance: BEVACIZUMAB-BVZR
     Dosage: 510 MG (10 MG/KG) EVERY (Q) 2 WEEKS.
     Route: 042
     Dates: start: 20211110
  23. ZIRABEV [Suspect]
     Active Substance: BEVACIZUMAB-BVZR
     Dosage: 510 MG (10 MG/KG) EVERY (Q) 2 WEEKS.
     Route: 042
     Dates: start: 20211124
  24. ZIRABEV [Suspect]
     Active Substance: BEVACIZUMAB-BVZR
     Dosage: 10 MG/KG (527) EVERY (Q) 2 WEEKS.
     Route: 042
     Dates: start: 20220112, end: 20220112
  25. ZIRABEV [Suspect]
     Active Substance: BEVACIZUMAB-BVZR
     Dosage: 10 MG/KG EVERY(531)  2 WEEKS.
     Route: 042
     Dates: start: 20220126, end: 20220126
  26. ZIRABEV [Suspect]
     Active Substance: BEVACIZUMAB-BVZR
     Dosage: 10 MG/KG EVERY(531)  2 WEEKS.
     Route: 042
     Dates: start: 20220126, end: 20220126
  27. ZIRABEV [Suspect]
     Active Substance: BEVACIZUMAB-BVZR
     Dosage: 10 MG/KG EVERY (518)  2 WEEKS.
     Route: 042
     Dates: start: 20220209, end: 20220209
  28. ZIRABEV [Suspect]
     Active Substance: BEVACIZUMAB-BVZR
     Dosage: 10 MG/KG EVERY(518)  2 WEEKS.
     Route: 042
     Dates: start: 20220209
  29. ZIRABEV [Suspect]
     Active Substance: BEVACIZUMAB-BVZR
     Dosage: 10 MG/KG (535) EVERY 2 WEEKS
     Route: 042
     Dates: start: 20220224
  30. ZIRABEV [Suspect]
     Active Substance: BEVACIZUMAB-BVZR
     Dosage: 10 MG/KG (517) EVERY 2 WEEKS
     Route: 042
     Dates: start: 20220309
  31. ZIRABEV [Suspect]
     Active Substance: BEVACIZUMAB-BVZR
     Dosage: 10 MG/KG (527) EVERY 2 WEEKS
     Route: 042
     Dates: start: 20220323
  32. CHOLECALCIFEROL [Concomitant]
     Active Substance: CHOLECALCIFEROL
     Dosage: 10000 IU
     Route: 048
  33. DEXILANT [Concomitant]
     Active Substance: DEXLANSOPRAZOLE
     Dosage: 60 MG
     Route: 048
  34. RANITIDINE [Concomitant]
     Active Substance: RANITIDINE
     Dosage: 150 MG
     Route: 048
  35. TAXOL [Concomitant]
     Active Substance: PACLITAXEL
     Indication: Ovarian cancer stage IV
     Dosage: 105 MG
     Route: 042
     Dates: start: 20200917
  36. ZOPICLONE [Concomitant]
     Active Substance: ZOPICLONE
     Dosage: 7.5 MG
     Route: 048

REACTIONS (29)
  - Blood pressure systolic increased [Unknown]
  - Intestinal perforation [Unknown]
  - Intestinal metastasis [Unknown]
  - Therapeutic product effect incomplete [Unknown]
  - Off label use [Unknown]
  - Off label use [Unknown]
  - Neoplasm progression [Unknown]
  - Abdominal pain [Recovered/Resolved]
  - Contusion [Unknown]
  - Neck pain [Not Recovered/Not Resolved]
  - Frequent bowel movements [Unknown]
  - Taste disorder [Unknown]
  - Abdominal pain upper [Unknown]
  - Back pain [Unknown]
  - Poor venous access [Recovered/Resolved]
  - Haemorrhoids [Recovered/Resolved]
  - Anorectal discomfort [Unknown]
  - Infusion site pain [Recovered/Resolved]
  - Ageusia [Not Recovered/Not Resolved]
  - Blood pressure diastolic decreased [Unknown]
  - Weight fluctuation [Not Recovered/Not Resolved]
  - Fatigue [Unknown]
  - Anxiety [Unknown]
  - Blood pressure decreased [Unknown]
  - Heart rate decreased [Unknown]
  - Cough [Unknown]
  - Pelvic pain [Unknown]
  - Sacral pain [Unknown]
  - Constipation [Unknown]

NARRATIVE: CASE EVENT DATE: 20200101
